FAERS Safety Report 5269949-4 (Version None)
Quarter: 2007Q1

REPORT INFORMATION
  Report Type: 
  Country: None (occurrence: None)
  Receive Date: 20070314
  Receipt Date: 20070227
  Transmission Date: 20070707
  Serious: Yes (Death, Hospitalization, Other)
  Sender: FDA-Public Use
  Company Number: ENC200700024

PATIENT
  Age: 73 Year
  Sex: Male

DRUGS (2)
  1. ARGATROBAN [Suspect]
     Indication: HEPARIN-INDUCED THROMBOCYTOPENIA
     Dosage: 0.5 MCG/KG/MIN, INTRAVENOUS
     Route: 042
     Dates: start: 20070211, end: 20070213
  2. ARGATROBAN [Suspect]
     Indication: HEPARIN-INDUCED THROMBOCYTOPENIA
     Dosage: 0.5 MCG/KG/MIN, INTRAVENOUS
     Route: 042
     Dates: start: 20070215

REACTIONS (4)
  - GASTROINTESTINAL HAEMORRHAGE [None]
  - HAEMODIALYSIS [None]
  - MULTI-ORGAN FAILURE [None]
  - PLATELET COUNT DECREASED [None]
